FAERS Safety Report 21521240 (Version 1)
Quarter: 2022Q4

REPORT INFORMATION
  Report Type: Report from Study
  Country: TR (occurrence: TR)
  Receive Date: 20221028
  Receipt Date: 20221028
  Transmission Date: 20230113
  Serious: Yes (Other)
  Sender: FDA-Public Use
  Company Number: TR-JNJFOC-20221049549

PATIENT

DRUGS (2)
  1. REMICADE [Suspect]
     Active Substance: INFLIXIMAB
     Indication: Product used for unknown indication
     Route: 041
  2. SIMPONI [Suspect]
     Active Substance: GOLIMUMAB
     Indication: Product used for unknown indication
     Route: 058

REACTIONS (12)
  - Multiple sclerosis [Unknown]
  - Astrocytoma, low grade [Unknown]
  - Neuropathy peripheral [Unknown]
  - Lumbosacral radiculoplexus neuropathy [Unknown]
  - Meningioma [Unknown]
  - Cauda equina syndrome [Unknown]
  - Myasthenia gravis [Unknown]
  - Idiopathic intracranial hypertension [Unknown]
  - Facial paralysis [Unknown]
  - Uraemic encephalopathy [Unknown]
  - Peroneal nerve palsy [Unknown]
  - Carpal tunnel syndrome [Unknown]
